FAERS Safety Report 5143469-X (Version None)
Quarter: 2006Q4

REPORT INFORMATION
  Report Type: 
  Country: None (occurrence: None)
  Receive Date: 20061103
  Receipt Date: 20061017
  Transmission Date: 20070319
  Serious: Yes (Other)
  Sender: FDA-Public Use
  Company Number: PHBS2006BR16255

PATIENT
  Sex: Female

DRUGS (2)
  1. FULVESTRANT [Concomitant]
     Route: 065
     Dates: end: 20050908
  2. ZOMETA [Suspect]
     Indication: METASTASES TO BONE
     Dosage: 1 DF, EVERY 28 DAYS
     Route: 065
     Dates: start: 20050112, end: 20050908

REACTIONS (1)
  - OSTEONECROSIS [None]
